FAERS Safety Report 5444902-6 (Version None)
Quarter: 2007Q3

REPORT INFORMATION
  Report Type: 
  Country: None (occurrence: None)
  Receive Date: 20070906
  Receipt Date: 20070831
  Transmission Date: 20080115
  Serious: Yes (Hospitalization)
  Sender: FDA-Public Use
  Company Number: A0678132A

PATIENT
  Age: 62 Year
  Sex: Female

DRUGS (9)
  1. ADVAIR DISKUS 100/50 [Suspect]
     Indication: ASTHMA
     Dosage: 1PUFF TWICE PER DAY
     Route: 055
     Dates: start: 20030101
  2. SYNTHROID [Concomitant]
  3. ALBUTEROL [Concomitant]
  4. CARDIZEM [Concomitant]
  5. AMBIEN [Concomitant]
  6. SINGULAIR [Concomitant]
  7. NEXIUM [Concomitant]
  8. IMDUR [Concomitant]
  9. THYROID TAB [Concomitant]

REACTIONS (8)
  - ASTHMA [None]
  - CHEST PAIN [None]
  - DYSPNOEA [None]
  - HEART RATE INCREASED [None]
  - HEART RATE IRREGULAR [None]
  - HYPERHIDROSIS [None]
  - INSOMNIA [None]
  - NERVOUSNESS [None]
